FAERS Safety Report 6135964-1 (Version None)
Quarter: 2009Q1

REPORT INFORMATION
  Report Type: 
  Country: None (occurrence: None)
  Receive Date: 20090329
  Receipt Date: 20080408
  Transmission Date: 20090719
  Serious: No
  Sender: FDA-Public Use
  Company Number: US-BAUSCH-2008BL001565

PATIENT
  Age: 84 Year
  Sex: Male

DRUGS (6)
  1. LOTEMAX [Suspect]
     Indication: DRUG USE FOR UNKNOWN INDICATION
     Route: 047
     Dates: start: 20080301
  2. VITAMINS [Concomitant]
     Indication: VITAMIN SUPPLEMENTATION
  3. ASPIRIN [Concomitant]
     Indication: DRUG USE FOR UNKNOWN INDICATION
  4. PILOCARPINE [Concomitant]
     Indication: GLAUCOMA
  5. XALATAN /SWE/ [Concomitant]
     Indication: GLAUCOMA
  6. TIMOPTIC [Concomitant]
     Indication: GLAUCOMA

REACTIONS (3)
  - DECREASED APPETITE [None]
  - FEELING ABNORMAL [None]
  - PAIN [None]
